FAERS Safety Report 5379053-2 (Version None)
Quarter: 2007Q3

REPORT INFORMATION
  Report Type: 
  Country: None (occurrence: None)
  Receive Date: 20070702
  Receipt Date: 20070620
  Transmission Date: 20080115
  Serious: Yes (Hospitalization)
  Sender: FDA-Public Use
  Company Number: 235099K07USA

PATIENT
  Age: 56 Year
  Sex: Female
  Weight: 86.1834 kg

DRUGS (3)
  1. REBIF [Suspect]
     Indication: MULTIPLE SCLEROSIS
     Dosage: 44 MCG, 3 IN 1 WEEKS, SUBCUTANEOUS
     Route: 058
     Dates: start: 20031119
  2. PREDNISONE [Suspect]
     Dosage: 1 IN 1 DAYS
     Dates: start: 20000101, end: 20051001
  3. BLOOD PRESSURE MEDICATION (ANTIHYOERTENSIVES) [Concomitant]

REACTIONS (3)
  - CHOLELITHIASIS [None]
  - OSTEOARTHRITIS [None]
  - TREATMENT NONCOMPLIANCE [None]
